FAERS Safety Report 19740263 (Version 4)
Quarter: 2021Q4

REPORT INFORMATION
  Report Type: Spontaneous
  Country: US (occurrence: US)
  Receive Date: 20210824
  Receipt Date: 20211129
  Transmission Date: 20220303
  Serious: Yes (Hospitalization, Other)
  Sender: FDA-Public Use
  Company Number: NVSC2021US184618

PATIENT
  Age: 29 Year
  Sex: Female
  Weight: 81 kg

DRUGS (4)
  1. ADAKVEO [Suspect]
     Active Substance: CRIZANLIZUMAB-TMCA
     Indication: Sickle cell anaemia with crisis
     Dosage: 405 MG, QMO (INTO BLOODSTREAM VIA VEIN)
     Route: 042
     Dates: start: 20210603, end: 20210603
  2. ADAKVEO [Suspect]
     Active Substance: CRIZANLIZUMAB-TMCA
     Dosage: 405 MG, QMO (INTO BLOODSTREAM VIA VEIN)
     Route: 042
     Dates: start: 20210617, end: 20210617
  3. SODIUM CHLORIDE [Concomitant]
     Active Substance: SODIUM CHLORIDE
     Indication: Product used for unknown indication
     Dosage: 100 ML
     Route: 065
  4. HYDREA [Concomitant]
     Active Substance: HYDROXYUREA
     Indication: Pain
     Dosage: 500 MG, QD (EXPERIENCES 10-12 PAIN CRISIS PER YEAR- PRESENTING AS NON-LOCALIZED)
     Route: 065

REACTIONS (5)
  - Culture urine positive [Recovered/Resolved]
  - Staphylococcus test positive [Recovered/Resolved]
  - Urinary tract infection staphylococcal [Recovered/Resolved]
  - Pain [Recovered/Resolved]
  - Infection [Unknown]

NARRATIVE: CASE EVENT DATE: 20210617
